FAERS Safety Report 13415428 (Version 1)
Quarter: 2017Q2

REPORT INFORMATION
  Report Type: Spontaneous
  Country: US (occurrence: US)
  Receive Date: 20170406
  Receipt Date: 20170406
  Transmission Date: 20170830
  Serious: Yes (Other)
  Sender: FDA-Public Use
  Company Number: US-PFIZER INC-2017134567

PATIENT
  Sex: Male

DRUGS (1)
  1. ANBESOL MAXIMUM STRENGTH [Suspect]
     Active Substance: BENZOCAINE
     Indication: ORAL HERPES

REACTIONS (9)
  - Dyspnoea [Unknown]
  - Cyanosis [Unknown]
  - Hypersensitivity [Unknown]
  - Tremor [Unknown]
  - Chills [Unknown]
  - Methaemoglobinaemia [Unknown]
  - Hypotension [Unknown]
  - Nail discolouration [Unknown]
  - Eye movement disorder [Unknown]
